FAERS Safety Report 10096051 (Version 1)
Quarter: 2014Q2

REPORT INFORMATION
  Report Type: Spontaneous
  Country: MY (occurrence: MY)
  Receive Date: 20140422
  Receipt Date: 20140422
  Transmission Date: 20141212
  Serious: Yes (Life-Threatening)
  Sender: FDA-Public Use
  Company Number: MY-GLAXOSMITHKLINE-B0987386A

PATIENT
  Sex: Male

DRUGS (6)
  1. VENTOLIN [Suspect]
     Indication: ASTHMA
     Dosage: 2PUFF AS REQUIRED
     Route: 055
     Dates: start: 2007
  2. OLMETEC [Concomitant]
     Indication: HYPERTENSION
     Dosage: 20MG PER DAY
     Route: 048
     Dates: start: 1999
  3. GLUCOPHAGE XR [Concomitant]
     Indication: DIABETES MELLITUS MANAGEMENT
     Dosage: 750MG PER DAY
     Route: 048
     Dates: start: 2009
  4. SERETIDE [Concomitant]
     Indication: ASTHMA
     Route: 065
     Dates: start: 2007
  5. MUCOSOLVAN [Concomitant]
     Indication: INCREASED UPPER AIRWAY SECRETION
     Dosage: 30MG THREE TIMES PER DAY
     Route: 048
  6. GAVISCON LIQUID [Concomitant]
     Indication: GASTRITIS
     Dosage: 10ML AS REQUIRED
     Route: 048

REACTIONS (3)
  - Dyspnoea [Recovered/Resolved]
  - Throat irritation [Recovered/Resolved]
  - Product quality issue [Unknown]
